FAERS Safety Report 19701628 (Version 4)
Quarter: 2023Q1

REPORT INFORMATION
  Report Type: Other
  Country: US (occurrence: None)
  Receive Date: 20210813
  Receipt Date: 20230317
  Transmission Date: 20230418
  Serious: Yes (Hospitalization, Other)
  Sender: FDA-Public Use
  Company Number: US-ROCHE-2884782

PATIENT
  Age: 64 Year
  Sex: Male
  Weight: 97.610 kg

DRUGS (10)
  1. OCREVUS [Suspect]
     Active Substance: OCRELIZUMAB
     Indication: Primary progressive multiple sclerosis
     Route: 042
     Dates: start: 201907, end: 202007
  2. OCREVUS [Suspect]
     Active Substance: OCRELIZUMAB
     Indication: Secondary progressive multiple sclerosis
     Dosage: LAST DATE OF TREATMENT: 31/JUL/2020
     Route: 042
     Dates: start: 20211202
  3. OCREVUS [Suspect]
     Active Substance: OCRELIZUMAB
     Dosage: LAST DATE OF TREATMENT: 31/JUL/2020
     Route: 042
     Dates: start: 20200731
  4. FLOMAX [Concomitant]
     Active Substance: TAMSULOSIN HYDROCHLORIDE
     Route: 048
  5. OXYBUTYNIN [Concomitant]
     Active Substance: OXYBUTYNIN
     Indication: Incontinence
     Route: 048
  6. OXYBUTYNIN [Concomitant]
     Active Substance: OXYBUTYNIN
     Route: 048
  7. TAMSULOSIN [Concomitant]
     Active Substance: TAMSULOSIN
     Indication: Incontinence
     Route: 048
  8. GABAPENTIN [Concomitant]
     Active Substance: GABAPENTIN
     Indication: Neuropathy peripheral
     Route: 048
  9. METHYLPREDNISOLONE SODIUM SUCCINATE [Concomitant]
     Active Substance: METHYLPREDNISOLONE SODIUM SUCCINATE
     Indication: Multiple sclerosis
  10. ACETAMINOPHEN [Concomitant]
     Active Substance: ACETAMINOPHEN
     Indication: Multiple sclerosis
     Route: 048

REACTIONS (16)
  - COVID-19 [Recovered/Resolved]
  - Dysstasia [Recovered/Resolved]
  - Perineal infection [Recovering/Resolving]
  - Immunisation reaction [Not Recovered/Not Resolved]
  - Ear pain [Recovering/Resolving]
  - Oropharyngeal pain [Recovering/Resolving]
  - Neuropathy peripheral [Unknown]
  - Polyneuropathy [Unknown]
  - Gait disturbance [Unknown]
  - Insomnia [Unknown]
  - Obstructive sleep apnoea syndrome [Unknown]
  - Chronic fatigue syndrome [Unknown]
  - Fall [Unknown]
  - Oedema peripheral [Unknown]
  - Depression [Unknown]
  - Anxiety [Unknown]

NARRATIVE: CASE EVENT DATE: 20210101
